FAERS Safety Report 5834112-2 (Version None)
Quarter: 2008Q3

REPORT INFORMATION
  Report Type: 
  Country: None (occurrence: None)
  Receive Date: 20080801
  Receipt Date: 20080731
  Transmission Date: 20090109
  Serious: Yes (Death)
  Sender: FDA-Public Use
  Company Number: 2008NI0163FU1

PATIENT
  Age: 90 Year
  Sex: Female

DRUGS (1)
  1. NITROLINGUAL PUMPSPRAY [Suspect]
     Indication: CHEST PAIN
     Dosage: USE AS DIRECTED, NA, SUBLINGUAL
     Route: 060

REACTIONS (1)
  - DEATH [None]
